FAERS Safety Report 5333982-4 (Version None)
Quarter: 2007Q2

REPORT INFORMATION
  Report Type: 
  Country: None (occurrence: None)
  Receive Date: 20070524
  Receipt Date: 20070516
  Transmission Date: 20071010
  Serious: Yes (Other)
  Sender: FDA-Public Use
  Company Number: BR-PFIZER INC-2007019689

PATIENT
  Sex: Female

DRUGS (7)
  1. GEODON [Suspect]
     Indication: SCHIZOPHRENIA
     Route: 048
  2. AMPLICTIL [Concomitant]
     Route: 048
  3. RIVOTRIL [Concomitant]
     Route: 048
  4. VALERIANA OFFICINALIS [Concomitant]
     Route: 048
  5. DIAZEPAM [Concomitant]
     Route: 048
  6. FENERGAN [Concomitant]
     Route: 048
  7. ALL OTHER THERAPEUTIC PRODUCTS [Concomitant]

REACTIONS (1)
  - SLEEP DISORDER [None]
